FAERS Safety Report 8105870-1 (Version None)
Quarter: 2012Q1

REPORT INFORMATION
  Report Type: 
  Country: None (occurrence: None)
  Receive Date: 20120202
  Receipt Date: 20120113
  Transmission Date: 20120608
  Serious: Yes (Hospitalization)
  Sender: FDA-Public Use
  Company Number: US-BIOGENIDEC-2012BI001693

PATIENT
  Age: 58 Year
  Sex: Female

DRUGS (4)
  1. AVONEX [Suspect]
     Indication: MULTIPLE SCLEROSIS
     Route: 030
     Dates: start: 20091001, end: 20111115
  2. ZOLOFT [Concomitant]
  3. XANAX [Concomitant]
  4. SYMMETREL [Concomitant]

REACTIONS (1)
  - MYOCARDIAL INFARCTION [None]
